FAERS Safety Report 18635830 (Version 1)
Quarter: 2020Q4

REPORT INFORMATION
  Report Type: Spontaneous
  Country: DE (occurrence: DE)
  Receive Date: 20201218
  Receipt Date: 20201218
  Transmission Date: 20210114
  Serious: Yes (Congenital Anomaly, Other)
  Sender: FDA-Public Use
  Company Number: DE-PFIZER INC-2020497584

PATIENT
  Age: 1 Day
  Sex: Male
  Weight: 3.15 kg

DRUGS (5)
  1. PREDNISOLON [PREDNISOLONE] [Concomitant]
     Active Substance: PREDNISOLONE
     Indication: RHEUMATOID ARTHRITIS
     Dosage: 5 MG 1X/DAY (0-0-5)
     Route: 064
     Dates: start: 20190605, end: 20200302
  2. PANTOZOL [Concomitant]
     Active Substance: PANTOPRAZOLE SODIUM
     Indication: GASTROOESOPHAGEAL REFLUX DISEASE
     Dosage: 40 [MG/2D (0-0-40) ], IN 0. - 38.5. GESTATIONAL WEEK
     Route: 064
     Dates: start: 20190605, end: 20200302
  3. QUENSYL [Suspect]
     Active Substance: HYDROXYCHLOROQUINE
     Indication: RHEUMATOID ARTHRITIS
     Dosage: 200 MG, 2X/DAY, IN 0. - 38.5. GESTATIONAL WEEK
     Route: 064
     Dates: start: 20190605, end: 20200302
  4. BOOSTRIX POLIO [Concomitant]
     Active Substance: DIPHTHERIA AND TETANUS TOXOIDS AND ACELLULAR PERTUSSIS ADSORBED AND INACTIVATED POLIOVIRUS VACCINE
     Indication: IMMUNISATION
     Dosage: 32.6. - 32.6. GESTATIONAL WEEK, SINGLE
     Route: 064
     Dates: start: 20200121, end: 20200121
  5. SULFASALAZINE. [Suspect]
     Active Substance: SULFASALAZINE
     Indication: RHEUMATOID ARTHRITIS
     Dosage: 1000 MG, 2X/DAY, IN 0. - 38.5. GESTATIONAL WEEK
     Route: 064
     Dates: start: 20190605, end: 20200302

REACTIONS (7)
  - Kidney duplex [Unknown]
  - Deformity thorax [Unknown]
  - Maternal exposure during pregnancy [Unknown]
  - Congenital hydronephrosis [Unknown]
  - Brachydactyly [Unknown]
  - Poland^s syndrome [Unknown]
  - Syndactyly [Unknown]

NARRATIVE: CASE EVENT DATE: 20200302
